FAERS Safety Report 6007660-2 (Version None)
Quarter: 2008Q4

REPORT INFORMATION
  Report Type: 
  Country: None (occurrence: None)
  Receive Date: 20081217
  Receipt Date: 20080401
  Transmission Date: 20090506
  Serious: No
  Sender: FDA-Public Use
  Company Number: US-ASTRAZENECA-2008UW06484

PATIENT
  Age: 69 Year
  Sex: Female
  Weight: 71.2 kg

DRUGS (7)
  1. CRESTOR [Suspect]
     Indication: BLOOD CHOLESTEROL INCREASED
     Route: 048
     Dates: start: 20080301
  2. PLAVIX [Concomitant]
  3. ASPIRIN [Concomitant]
  4. MESTINON [Concomitant]
     Dosage: 5 TIMES A DAY
  5. POTASSIUM CHLORIDE [Concomitant]
     Dosage: 10 MEW
  6. TOPROL-XL [Concomitant]
  7. ENALAPRIL MALEATE [Concomitant]

REACTIONS (1)
  - INSOMNIA [None]
